FAERS Safety Report 6457406-9 (Version None)
Quarter: 2009Q4

REPORT INFORMATION
  Report Type: 
  Country: None (occurrence: None)
  Receive Date: 20091125
  Receipt Date: 20091117
  Transmission Date: 20100525
  Serious: Yes (Other)
  Sender: FDA-Public Use
  Company Number: SE-B.I. PHARMACEUTICALS,INC./RIDGEFIELD-2009-SW-00288SW

PATIENT
  Sex: Female

DRUGS (1)
  1. SIFROL TAB. 0.18 MG [Suspect]

REACTIONS (2)
  - CARDIAC FAILURE [None]
  - OEDEMA [None]
